FAERS Safety Report 13118844 (Version 1)
Quarter: 2017Q1

REPORT INFORMATION
  Report Type: Spontaneous
  Country: DK (occurrence: DK)
  Receive Date: 20170116
  Receipt Date: 20170116
  Transmission Date: 20170428
  Serious: Yes (Life-Threatening, Hospitalization)
  Sender: FDA-Public Use
  Company Number: DK-FRESENIUS KABI-FK201700409

PATIENT
  Age: 68 Year
  Sex: Female

DRUGS (16)
  1. ENALAPRIL SANDOZ [Concomitant]
     Active Substance: ENALAPRIL
     Indication: HYPERTENSION
  2. OXALIPLATIN ACCORD [Suspect]
     Active Substance: OXALIPLATIN
     Indication: OESOPHAGEAL CARCINOMA
     Route: 042
     Dates: start: 20160616, end: 20161103
  3. ESTRING [Concomitant]
     Active Substance: ESTRADIOL
     Indication: HORMONE REPLACEMENT THERAPY
  4. INNOHEP [Concomitant]
     Active Substance: TINZAPARIN SODIUM
     Indication: PULMONARY EMBOLISM
     Dates: start: 20161030
  5. ALLOPURINOL DAK [Concomitant]
     Indication: HYPERURICAEMIA
  6. ATENODAN [Concomitant]
     Indication: HYPERTENSION
  7. CAPECITABINE. [Concomitant]
     Active Substance: CAPECITABINE
     Indication: OESOPHAGEAL CARCINOMA
     Route: 048
     Dates: start: 20160616, end: 20161223
  8. PINEX [Concomitant]
     Active Substance: ACETAMINOPHEN
     Indication: PAIN
  9. METOPROLOLSUCCINAT HEXAL [Concomitant]
     Active Substance: METOPROLOL SUCCINATE
     Indication: HYPERTENSION
     Dates: start: 20161227
  10. PANTOPRAZOL ACTAVIS [Concomitant]
     Active Substance: PANTOPRAZOLE SODIUM
     Indication: GASTROOESOPHAGEAL REFLUX DISEASE
     Route: 042
  11. OXALIPLATIN 5MG/ML CONCENTRATE FOR SOLUTION FOR INFUSION [Suspect]
     Active Substance: OXALIPLATIN
     Indication: OESOPHAGEAL CARCINOMA
     Route: 042
     Dates: start: 20160616, end: 20161103
  12. MABLET [Concomitant]
     Indication: HYPOMAGNESAEMIA
  13. EPIRUBICIN TEVA [Concomitant]
     Active Substance: EPIRUBICIN
     Indication: OESOPHAGEAL CARCINOMA
     Route: 042
     Dates: start: 20160606
  14. EPIRUBICIN TEVA [Concomitant]
     Active Substance: EPIRUBICIN
     Route: 042
     Dates: start: 20160606
  15. ELTROXIN [Concomitant]
     Active Substance: LEVOTHYROXINE
     Indication: HYPOTHYROIDISM
  16. SIMVASTATIN ORION [Concomitant]
     Active Substance: SIMVASTATIN
     Indication: HYPERCHOLESTEROLAEMIA

REACTIONS (5)
  - Confusional state [Recovering/Resolving]
  - Anaemia [Not Recovered/Not Resolved]
  - Urosepsis [Recovering/Resolving]
  - Neurotoxicity [Unknown]
  - Leukopenia [Not Recovered/Not Resolved]

NARRATIVE: CASE EVENT DATE: 20161223
